FAERS Safety Report 23595219 (Version 1)
Quarter: 2024Q1

REPORT INFORMATION
  Report Type: Other
  Country: US (occurrence: None)
  Receive Date: 20240305
  Receipt Date: 20240305
  Transmission Date: 20240410
  Serious: Yes (Hospitalization, Other)
  Sender: FDA-Public Use
  Company Number: US-ROCHE-3517538

PATIENT
  Sex: Male

DRUGS (1)
  1. RITUXAN [Suspect]
     Active Substance: RITUXIMAB
     Indication: Chronic lymphocytic leukaemia
     Route: 065

REACTIONS (16)
  - Monoplegia [Unknown]
  - Herpes zoster [Unknown]
  - Diffuse large B-cell lymphoma [Unknown]
  - Lymphadenopathy [Unknown]
  - Chronic lymphocytic leukaemia transformation [Unknown]
  - Fatigue [Unknown]
  - Dysstasia [Unknown]
  - Bedridden [Unknown]
  - Feeding disorder [Unknown]
  - Abdominal pain upper [Unknown]
  - Abdominal pain [Unknown]
  - COVID-19 [Unknown]
  - Weight decreased [Unknown]
  - Feeling abnormal [Unknown]
  - Balance disorder [Unknown]
  - Illness [Unknown]
